FAERS Safety Report 9185239 (Version 1)
Quarter: 2012Q4

REPORT INFORMATION
  Report Type: Report from Study
  Country: US (occurrence: US)
  Receive Date: 20121101
  Receipt Date: 20121101
  Transmission Date: 20130627
  Serious: Yes (Other)
  Sender: FDA-Public Use
  Company Number: US-PFIZER INC-2011103505

PATIENT
  Age: 58 Year
  Sex: Male
  Weight: 63.5 kg

DRUGS (8)
  1. CHANTIX [Suspect]
     Indication: SMOKING CESSATION THERAPY
     Dosage: UNK
     Route: 048
     Dates: end: 2010
  2. CHANTIX [Suspect]
     Dosage: 0.5 mg, 1x/day
     Route: 048
     Dates: start: 201105
  3. FENTANYL [Concomitant]
     Indication: CHRONIC PAIN
     Dosage: 100 ug, UNK
  4. HYDROCODONE [Concomitant]
     Indication: CHRONIC PAIN
     Dosage: UNK
  5. LISINOPRIL [Concomitant]
     Indication: BLOOD PRESSURE HIGH
     Dosage: 10 mg, 1x/day
  6. CLONAZEPAM [Concomitant]
     Indication: ANXIETY
     Dosage: 1 mg, 2x/day
  7. CLONAZEPAM [Concomitant]
     Dosage: 2 mg, 3 or 4 times a day as needed
  8. ALBUTEROL [Concomitant]
     Indication: NEUROPATHY
     Dosage: 100 ug, UNK

REACTIONS (8)
  - Feeling drunk [Unknown]
  - Gait disturbance [Unknown]
  - Fall [Unknown]
  - Withdrawal syndrome [Unknown]
  - Sleep disorder [Unknown]
  - Weight decreased [Unknown]
  - Nausea [Recovered/Resolved]
  - Vomiting [Recovered/Resolved]
